FAERS Safety Report 4706509-5 (Version None)
Quarter: 2005Q2

REPORT INFORMATION
  Report Type: 
  Country: None (occurrence: None)
  Receive Date: 20050114
  Receipt Date: 20050114
  Transmission Date: 20051028
  Serious: Yes (Other)
  Sender: FDA-Public Use
  Company Number: None

PATIENT
  Sex: Female

DRUGS (2)
  1. OXYCODONE AND ACETAMINOPHEN [Suspect]
     Indication: INTERVERTEBRAL DISC PROTRUSION
     Dosage: 5MG ONE TO TWO TABS DAILY PRN
     Dates: start: 20030204, end: 20030407
  2. OXYCODONE AND ACETAMINOPHEN [Suspect]
     Indication: OSTEOARTHRITIS
     Dosage: 5MG ONE TO TWO TABS DAILY PRN
     Dates: start: 20030204, end: 20030407

REACTIONS (2)
  - DRUG EFFECT DECREASED [None]
  - THERAPEUTIC RESPONSE UNEXPECTED WITH DRUG SUBSTITUTION [None]
